FAERS Safety Report 24709538 (Version 1)
Quarter: 2024Q4

REPORT INFORMATION
  Report Type: Spontaneous
  Country: US (occurrence: US)
  Receive Date: 20241209
  Receipt Date: 20241209
  Transmission Date: 20250115
  Serious: No
  Sender: TEVA
  Company Number: US-TEVA-VS-3260235

PATIENT
  Age: 23 Year
  Sex: Female
  Weight: 73.48 kg

DRUGS (7)
  1. AUSTEDO [Suspect]
     Active Substance: DEUTETRABENAZINE
     Indication: Motor dysfunction
     Route: 065
  2. AUSTEDO [Suspect]
     Active Substance: DEUTETRABENAZINE
     Indication: Motor dysfunction
     Dosage: 1 WEEK
     Route: 065
  3. AUSTEDO [Suspect]
     Active Substance: DEUTETRABENAZINE
     Indication: Motor dysfunction
     Dosage: 9 MG, 1 TABLET IN THE MORNING + AUSTEDO 12 MG, 1 TABLET IN THE EVENING X 1 WEEK,
     Route: 065
  4. CLARITIN [Concomitant]
     Active Substance: LORATADINE
     Indication: Product used for unknown indication
  5. ATIVAN [Concomitant]
     Active Substance: LORAZEPAM
     Indication: Product used for unknown indication
  6. RISPERDAL [Concomitant]
     Active Substance: RISPERIDONE
     Indication: Product used for unknown indication
  7. QUVIVIQ [Concomitant]
     Active Substance: DARIDOREXANT
     Indication: Product used for unknown indication

REACTIONS (4)
  - Product use issue [Unknown]
  - Adverse event [Unknown]
  - Off label use [Unknown]
  - Feeling jittery [Recovered/Resolved]
